FAERS Safety Report 8610563 (Version 2)
Quarter: 2012Q4

REPORT INFORMATION
  Report Type: Report from Study
  Country: US (occurrence: US)
  Receive Date: 20120612
  Receipt Date: 20121218
  Transmission Date: 20130627
  Serious: Yes (Other)
  Sender: FDA-Public Use
  Company Number: US-ROCHE-1023569

PATIENT
  Sex: Male

DRUGS (1)
  1. VEMURAFENIB [Suspect]
     Indication: PRODUCT USED FOR UNKNOWN INDICATION
     Route: 065

REACTIONS (8)
  - Brain mass [Unknown]
  - Contusion [Unknown]
  - Vision blurred [Unknown]
  - Lymphadenopathy [Unknown]
  - Mass [Unknown]
  - Fatigue [Unknown]
  - Headache [Unknown]
  - Visual impairment [Unknown]
